FAERS Safety Report 4389998-8 (Version None)
Quarter: 2004Q2

REPORT INFORMATION
  Report Type: 
  Country: None (occurrence: None)
  Receive Date: 20040628
  Receipt Date: 20040614
  Transmission Date: 20050107
  Serious: Yes (Disabling, Other)
  Sender: FDA-Public Use
  Company Number: 2004033874

PATIENT
  Age: 42 Year
  Sex: Female
  Weight: 88.4514 kg

DRUGS (30)
  1. NEURONTIN [Suspect]
     Indication: DIABETIC NEUROPATHY
     Dosage: 1800 MG (600 MG, 3 IN 1 D), ORAL
     Route: 048
     Dates: start: 20020326, end: 20040510
  2. INSULIN LISPRO (INSULIN LISPRO) [Concomitant]
  3. HUMALOG MIX 25 (INSULIN LISPRO, INSULIN LISPRO PROTAMINE SUSPENSION) [Concomitant]
  4. STARLIX [Concomitant]
  5. ALL OTHER THERAPEUTIC PRODUCTS (ALL OTHER THERAPEUTIC PRODUCTS) [Concomitant]
  6. CARVEDILOL [Concomitant]
  7. EZETIMIBE (EZETIMIBE) [Concomitant]
  8. RAMIPRIL [Concomitant]
  9. TOLTERODINE L-TARTRATE (TOLTERODINE L-TARTRATE) [Concomitant]
  10. VENLAFAXINE HCL [Concomitant]
  11. FUROSEMIDE [Concomitant]
  12. ATORVASTATIN CALCIUM [Concomitant]
  13. LOPERAMIDE HYDROCHLORIDE [Concomitant]
  14. ROSIGLITAZONE MALEATE [Concomitant]
  15. FEXOFENADINE HYDROCHLORIDE [Concomitant]
  16. MULTIVITAMINS (ASCORBIC ACID, ERGOCALCIFEROL, FOLIC ACID, NICOTINAMIDE [Concomitant]
  17. VALACICLOVIR HYDROCHLORIDE (VALACICLOVIR HYDROCHLORIDE) [Concomitant]
  18. ISOSORBIDE MONONITRATE [Concomitant]
  19. MONTELUKAST SODIUM (MONTELUKAST SODIUM) [Concomitant]
  20. ESOMEPRAZOLE (ESOMEPRAZOLE) [Concomitant]
  21. OXYCOCET (OXYCODONE HYDROCHLORIDE, PARACETAMOL) [Concomitant]
  22. LACTULOSE [Concomitant]
  23. NYSTATIN [Concomitant]
  24. TRAMADOL HCL [Concomitant]
  25. MIRTAZAPINE [Concomitant]
  26. METOLAZONE [Concomitant]
  27. OLANZAPINE [Concomitant]
  28. AMITRIPTYLINE HCL [Concomitant]
  29. BUPROPION HYDROCHLORIDE [Concomitant]
  30. DIMETICONE, ACTIVATED (SIMETICONE) [Concomitant]

REACTIONS (5)
  - DENTAL CARIES [None]
  - TOOTH DISCOLOURATION [None]
  - TOOTH DISORDER [None]
  - TOOTH FRACTURE [None]
  - TOOTHACHE [None]
